FAERS Safety Report 8574998-4 (Version None)
Quarter: 2012Q3

REPORT INFORMATION
  Report Type: 
  Country: None (occurrence: None)
  Receive Date: 20120807
  Receipt Date: 20120802
  Transmission Date: 20120928
  Serious: Yes (Death)
  Sender: FDA-Public Use
  Company Number: US-BAYER-2011-071774

PATIENT
  Sex: Male

DRUGS (8)
  1. COUMADIN [Concomitant]
  2. ASPIRIN [Concomitant]
     Dosage: 81 MG, UNK
     Route: 048
  3. KLOR-CON [Concomitant]
     Dosage: 20 MG, UNK
     Route: 048
  4. MAGNEVIST [Suspect]
  5. OMNISCAN [Suspect]
  6. GADOLINIUM IN UNSPECIFIED DRUG [Suspect]
     Indication: NUCLEAR MAGNETIC RESONANCE IMAGING ABDOMINAL
     Dosage: UNK
     Route: 042
     Dates: start: 20061113
  7. METOCLOPRAMIDE [Concomitant]
     Dosage: 10 MG, UNK
     Route: 048
  8. HECTOROL [Concomitant]
     Dosage: UNK, 2.5/ 100MG

REACTIONS (11)
  - ANXIETY [None]
  - BALANCE DISORDER [None]
  - EXTREMITY CONTRACTURE [None]
  - ANHEDONIA [None]
  - ABASIA [None]
  - NEPHROGENIC SYSTEMIC FIBROSIS [None]
  - PAIN [None]
  - SKIN LESION [None]
  - SKIN TIGHTNESS [None]
  - MOBILITY DECREASED [None]
  - DEPRESSION [None]
